FAERS Safety Report 8860758 (Version 2)
Quarter: 2012Q4

REPORT INFORMATION
  Report Type: 
  Country: JP (occurrence: JP)
  Receive Date: 20121026
  Receipt Date: 20121108
  Transmission Date: 20130627
  Serious: Yes (Life-Threatening)
  Sender: FDA-Public Use
  Company Number: JP-GE HEALTHCARE MEDICAL DIAGNOSTICS-OSCN-NO-1210S-0151

PATIENT
  Age: 70 Year
  Sex: Male

DRUGS (1)
  1. OMNISCAN [Suspect]
     Indication: PROSTATE CANCER
     Route: 042
     Dates: start: 20120926, end: 20120926

REACTIONS (3)
  - Hypotension [Recovered/Resolved]
  - Yawning [Recovered/Resolved]
  - Cold sweat [Recovered/Resolved]
